FAERS Safety Report 4473823-0 (Version None)
Quarter: 2004Q4

REPORT INFORMATION
  Report Type: 
  Country: None (occurrence: None)
  Receive Date: 20041008
  Receipt Date: 20041008
  Transmission Date: 20050328
  Serious: Yes (Life-Threatening, Disabling)
  Sender: FDA-Public Use
  Company Number: None

PATIENT
  Age: 55 Year
  Sex: Male
  Weight: 104.3273 kg

DRUGS (2)
  1. DEPO-MEDROL [Suspect]
     Indication: BACK PAIN
     Dosage: EPIDURAL
     Route: 008
     Dates: start: 20040728, end: 20040728
  2. DEPO-MEDROL [Suspect]
     Indication: BACK PAIN
     Dosage: EPIDURAL
     Route: 008
     Dates: start: 20040818, end: 20040818

REACTIONS (6)
  - CEREBROSPINAL FLUID LEAKAGE [None]
  - FATIGUE [None]
  - FEELING ABNORMAL [None]
  - HEADACHE [None]
  - HYPOAESTHESIA [None]
  - MEDICATION ERROR [None]
